FAERS Safety Report 15433427 (Version 1)
Quarter: 2018Q3

REPORT INFORMATION
  Report Type: Spontaneous
  Country: DE (occurrence: DE)
  Receive Date: 20180927
  Receipt Date: 20180927
  Transmission Date: 20181010
  Serious: Yes (Other)
  Sender: FDA-Public Use
  Company Number: DE-TEVA-2018-DE-958826

PATIENT
  Age: 36 Year
  Sex: Female
  Weight: 60 kg

DRUGS (4)
  1. LODOTRA [Suspect]
     Active Substance: PREDNISONE
     Indication: RHEUMATOID ARTHRITIS
     Dosage: 5 MILLIGRAM DAILY; 5 MG, QD
     Route: 048
     Dates: start: 20161216, end: 20170907
  2. FOLIC ACID. [Suspect]
     Active Substance: FOLIC ACID
     Indication: PROPHYLAXIS OF NEURAL TUBE DEFECT
     Dosage: .4 MILLIGRAM DAILY; 0.8 [MG/D (BIS 0.4 MG/D) ]
     Route: 048
     Dates: start: 20170130, end: 20170907
  3. URSOFALK [Suspect]
     Active Substance: URSODIOL
     Indication: CHOLESTASIS OF PREGNANCY
     Dosage: 1000 MILLIGRAM DAILY; 1000 MG, QD
     Route: 048
     Dates: start: 20170822, end: 20170907
  4. ORENCIA [Suspect]
     Active Substance: ABATACEPT
     Indication: RHEUMATOID ARTHRITIS
     Dosage: 125 MG, QWK
     Route: 058

REACTIONS (4)
  - Cholestasis of pregnancy [Unknown]
  - Gestational diabetes [Recovered/Resolved]
  - Maternal exposure during pregnancy [Unknown]
  - Product use issue [Unknown]
